FAERS Safety Report 6180045-4 (Version None)
Quarter: 2009Q2

REPORT INFORMATION
  Report Type: 
  Country: None (occurrence: None)
  Receive Date: 20090505
  Receipt Date: 20090429
  Transmission Date: 20091009
  Serious: Yes (Death, Hospitalization)
  Sender: FDA-Public Use
  Company Number: GR-ABBOTT-09P-066-0565600-00

PATIENT
  Age: 81 Year
  Sex: Male
  Weight: 60 kg

DRUGS (15)
  1. ZEMPLAR [Suspect]
     Indication: HYPERPARATHYROIDISM SECONDARY
     Route: 042
     Dates: start: 20070223, end: 20090320
  2. EPREX [Concomitant]
     Indication: DRUG USE FOR UNKNOWN INDICATION
  3. FERROVIN [Concomitant]
     Indication: DRUG USE FOR UNKNOWN INDICATION
  4. SUPERAMIN [Concomitant]
     Indication: DRUG USE FOR UNKNOWN INDICATION
  5. NEUROBION [Concomitant]
     Indication: DRUG USE FOR UNKNOWN INDICATION
  6. MIMPARA [Concomitant]
     Indication: DRUG USE FOR UNKNOWN INDICATION
  7. FORSENOL [Concomitant]
     Indication: DRUG USE FOR UNKNOWN INDICATION
  8. RENAGEL [Concomitant]
     Indication: DRUG USE FOR UNKNOWN INDICATION
  9. TARONTAL [Concomitant]
     Indication: DRUG USE FOR UNKNOWN INDICATION
  10. LOFTYL [Concomitant]
     Indication: DRUG USE FOR UNKNOWN INDICATION
  11. LOPRESOR [Concomitant]
     Indication: DRUG USE FOR UNKNOWN INDICATION
  12. CONTROLOC [Concomitant]
     Indication: DRUG USE FOR UNKNOWN INDICATION
  13. SIMVASTATIN [Concomitant]
     Indication: DRUG USE FOR UNKNOWN INDICATION
  14. MONOSORDIL [Concomitant]
     Indication: DRUG USE FOR UNKNOWN INDICATION
  15. CLOPIDOGREL [Concomitant]
     Indication: DRUG USE FOR UNKNOWN INDICATION

REACTIONS (2)
  - CARDIO-RESPIRATORY ARREST [None]
  - HAEMATOCHEZIA [None]
